FAERS Safety Report 25831104 (Version 2)
Quarter: 2025Q4

REPORT INFORMATION
  Report Type: Spontaneous
  Country: US (occurrence: US)
  Receive Date: 20250922
  Receipt Date: 20251221
  Transmission Date: 20260118
  Serious: No
  Sender: AMNEAL
  Company Number: US-AMNEAL PHARMACEUTICALS-2025-AMRX-03474

PATIENT
  Sex: Female

DRUGS (2)
  1. DAPSONE [Suspect]
     Active Substance: DAPSONE
     Indication: Product used for unknown indication
     Dosage: 7.5%, 90 G
     Route: 065
     Dates: start: 20250829
  2. DAPSONE [Suspect]
     Active Substance: DAPSONE
     Dosage: 7.5%
     Route: 065

REACTIONS (2)
  - Product delivery mechanism issue [Unknown]
  - No adverse event [Unknown]

NARRATIVE: CASE EVENT DATE: 20250829
